FAERS Safety Report 14576436 (Version 2)
Quarter: 2018Q2

REPORT INFORMATION
  Report Type: Spontaneous
  Country: US (occurrence: US)
  Receive Date: 20180227
  Receipt Date: 20180614
  Transmission Date: 20180711
  Serious: No
  Sender: FDA-Public Use
  Company Number: US-PFIZER INC-2018080499

PATIENT
  Age: 62 Year
  Sex: Male
  Weight: 108 kg

DRUGS (2)
  1. GABAPENTIN. [Suspect]
     Active Substance: GABAPENTIN
     Indication: NEUROPATHY PERIPHERAL
     Dosage: 300 MG, 3X/DAY
     Route: 048
  2. MORPHINE [Concomitant]
     Active Substance: MORPHINE
     Indication: BACK DISORDER
     Dosage: UNK

REACTIONS (1)
  - Drug ineffective for unapproved indication [Unknown]
